FAERS Safety Report 13329561 (Version 2)
Quarter: 2017Q1

REPORT INFORMATION
  Report Type: Spontaneous
  Country: US (occurrence: US)
  Receive Date: 20170313
  Receipt Date: 20170324
  Transmission Date: 20170428
  Serious: No
  Sender: FDA-Public Use
  Company Number: US-GLAXOSMITHKLINE-US2017033544

PATIENT
  Age: 29 Year
  Sex: Female
  Weight: 70.75 kg

DRUGS (1)
  1. NUCALA [Suspect]
     Active Substance: MEPOLIZUMAB
     Indication: PRODUCT USE ISSUE
     Dosage: UNK
     Route: 058
     Dates: start: 2016

REACTIONS (2)
  - Medication error [Unknown]
  - Accidental exposure to product [Recovered/Resolved]

NARRATIVE: CASE EVENT DATE: 20170308
